FAERS Safety Report 4556766-3 (Version None)
Quarter: 2005Q1

REPORT INFORMATION
  Report Type: 
  Country: None (occurrence: None)
  Receive Date: 20050103
  Receipt Date: 20040721
  Transmission Date: 20050727
  Serious: Yes (Other)
  Sender: FDA-Public Use
  Company Number: 2004UW15442

PATIENT
  Age: 77 Year
  Sex: Female
  Weight: 58.9676 kg

DRUGS (4)
  1. CRESTOR [Suspect]
     Indication: BLOOD CHOLESTEROL INCREASED
     Dates: start: 20040201, end: 20040501
  2. CRESTOR [Suspect]
     Indication: BLOOD CHOLESTEROL INCREASED
     Dosage: 20 MG PO
     Route: 048
     Dates: start: 20040501
  3. MULTI-VITAMINS [Concomitant]
  4. GLUCOSAMIN/ CHONDROITIN [Concomitant]

REACTIONS (3)
  - IRRITABILITY [None]
  - NAIL DISORDER [None]
  - WEIGHT FLUCTUATION [None]
